FAERS Safety Report 5907262-X (Version None)
Quarter: 2008Q4

REPORT INFORMATION
  Report Type: 
  Country: None (occurrence: None)
  Receive Date: 20081003
  Receipt Date: 20080926
  Transmission Date: 20090506
  Serious: Yes (Other)
  Sender: FDA-Public Use
  Company Number: PHHY2008FR23043

PATIENT
  Age: 43 Year
  Sex: Female

DRUGS (4)
  1. TEGRETOL [Suspect]
     Indication: PARTIAL SEIZURES
     Dosage: 400 MG, QD
     Route: 048
  2. TEGRETOL [Suspect]
     Dosage: 800 MG, QD
  3. TEGRETOL [Suspect]
     Dosage: 600 MG, QD
  4. PROZAC [Concomitant]
     Dosage: 1 DF, QD

REACTIONS (5)
  - ASTHENIA [None]
  - INSOMNIA [None]
  - NERVOUSNESS [None]
  - PARAESTHESIA [None]
  - WITHDRAWAL SYNDROME [None]
